FAERS Safety Report 10079124 (Version 1)
Quarter: 2014Q2

REPORT INFORMATION
  Report Type: Spontaneous
  Country: US (occurrence: None)
  Receive Date: 20140414
  Receipt Date: 20140414
  Transmission Date: 20141212
  Serious: Yes (Other)
  Sender: FDA-Public Use
  Company Number: None

PATIENT
  Age: 32 Year
  Sex: Female
  Weight: 71.67 kg

DRUGS (2)
  1. MSER 100MG [Suspect]
     Indication: THORACIC VERTEBRAL FRACTURE
     Route: 048
     Dates: start: 20140410
  2. MSER 100MG [Suspect]
     Indication: LUMBAR VERTEBRAL FRACTURE
     Route: 048
     Dates: start: 20140410

REACTIONS (2)
  - Dermatitis allergic [None]
  - Unevaluable event [None]
